FAERS Safety Report 12757565 (Version 1)
Quarter: 2016Q3

REPORT INFORMATION
  Report Type: Spontaneous
  Country: US (occurrence: US)
  Receive Date: 20160919
  Receipt Date: 20160919
  Transmission Date: 20161109
  Serious: Yes (Other)
  Sender: FDA-Public Use
  Company Number: US-WEST-WARD PHARMACEUTICALS CORP.-US-H14001-16-01838

PATIENT
  Age: 6 Year
  Sex: Female
  Weight: 21.7 kg

DRUGS (3)
  1. MIDAZOLAM [Suspect]
     Active Substance: MIDAZOLAM\MIDAZOLAM HYDROCHLORIDE
     Indication: SEROTONIN SYNDROME
     Route: 042
  2. NORMAL SALINE [Concomitant]
     Active Substance: SODIUM CHLORIDE
     Indication: PRODUCT USED FOR UNKNOWN INDICATION
     Route: 065
  3. LORAZEPAM. [Suspect]
     Active Substance: LORAZEPAM
     Indication: SEROTONIN SYNDROME
     Route: 042

REACTIONS (3)
  - Condition aggravated [Recovering/Resolving]
  - Paradoxical drug reaction [Recovering/Resolving]
  - Serotonin syndrome [Recovering/Resolving]
